FAERS Safety Report 20764251 (Version 1)
Quarter: 2022Q2

REPORT INFORMATION
  Report Type: Spontaneous
  Country: US (occurrence: None)
  Receive Date: 20220428
  Receipt Date: 20220428
  Transmission Date: 20220721
  Serious: Yes (Hospitalization)
  Sender: FDA-Public Use
  Company Number: None

PATIENT
  Age: 75 Year
  Sex: Female

DRUGS (1)
  1. OPSUMIT [Suspect]
     Active Substance: MACITENTAN
     Indication: Pulmonary hypertension
     Dosage: FREQUENCY : DAILY;?
     Route: 048
     Dates: start: 20180830

REACTIONS (4)
  - Syncope [None]
  - Hyperhidrosis [None]
  - Unresponsive to stimuli [None]
  - Blood pressure systolic decreased [None]

NARRATIVE: CASE EVENT DATE: 20220330
